FAERS Safety Report 8362038 (Version 2)
Quarter: 2015Q2

REPORT INFORMATION
  Report Type: Report from Study
  Country: US (occurrence: US)
  Receive Date: 20120130
  Receipt Date: 20150408
  Transmission Date: 20150821
  Serious: Yes (Death, Hospitalization)
  Sender: FDA-Public Use
  Company Number: US-ROCHE-1033613

PATIENT
  Sex: Female

DRUGS (11)
  1. TOBREX [Concomitant]
     Active Substance: TOBRAMYCIN
  2. MOTRIN [Concomitant]
     Active Substance: IBUPROFEN
  3. ADVAIR HFA [Concomitant]
     Active Substance: FLUTICASONE PROPIONATE\SALMETEROL XINAFOATE
  4. KEFLEX [Concomitant]
     Active Substance: CEPHALEXIN
  5. TYLENOL [Concomitant]
     Active Substance: ACETAMINOPHEN
  6. BETADINE [Concomitant]
     Active Substance: POVIDONE-IODINE
  7. LUCENTIS [Suspect]
     Active Substance: RANIBIZUMAB
     Indication: AGE-RELATED MACULAR DEGENERATION
     Route: 050
  8. GLUCOPHAGE [Concomitant]
     Active Substance: METFORMIN HYDROCHLORIDE
     Route: 065
  9. ZOLOFT [Concomitant]
     Active Substance: SERTRALINE HYDROCHLORIDE
  10. AVASTIN [Suspect]
     Active Substance: BEVACIZUMAB
     Indication: AGE-RELATED MACULAR DEGENERATION
     Route: 065
  11. PROTONIX (UNITED STATES) [Concomitant]

REACTIONS (2)
  - Cardiac failure congestive [Unknown]
  - Death [Fatal]
